FAERS Safety Report 8721035 (Version 8)
Quarter: 2015Q2

REPORT INFORMATION
  Report Type: Report from Study
  Country: NO (occurrence: NO)
  Receive Date: 20120813
  Receipt Date: 20150605
  Transmission Date: 20150821
  Serious: Yes (Life-Threatening, Hospitalization)
  Sender: FDA-Public Use
  Company Number: PHHY2012NO068983

PATIENT
  Age: 14 Year
  Sex: Female
  Weight: 55 kg

DRUGS (13)
  1. FOLSYRE NAF [Concomitant]
     Active Substance: FOLIC ACID
     Indication: PRODUCT USED FOR UNKNOWN INDICATION
     Route: 048
  2. CALCIGRAN FORTE [Concomitant]
     Indication: PRODUCT USED FOR UNKNOWN INDICATION
     Dosage: 1 DF, QD
     Route: 048
  3. PREDNISOLON [Concomitant]
     Active Substance: PREDNISOLONE
     Indication: JUVENILE IDIOPATHIC ARTHRITIS
     Dosage: 10 MG, QD
     Route: 065
  4. PREDNISOLON [Concomitant]
     Active Substance: PREDNISOLONE
     Dosage: 6.25 MG, QD
     Route: 048
     Dates: start: 2010
  5. METHOTREXATE [Concomitant]
     Active Substance: METHOTREXATE
     Dosage: DRUG TEMPORARILY WITHDRAWN DURING HOSPITALISATION
     Route: 048
     Dates: start: 2010
  6. PREDNISOLON [Concomitant]
     Active Substance: PREDNISOLONE
     Dosage: 7.5 MG, QD
     Route: 065
     Dates: start: 20120625
  7. ILARIS [Suspect]
     Active Substance: CANAKINUMAB
     Indication: JUVENILE IDIOPATHIC ARTHRITIS
     Dosage: 600 MG, EVERY 4 WEEKS
     Route: 058
     Dates: start: 20110501
  8. METHOTREXATE [Concomitant]
     Active Substance: METHOTREXATE
     Indication: JUVENILE IDIOPATHIC ARTHRITIS
     Dosage: 12 MG PER WEEK
     Route: 065
  9. LOSEC [Concomitant]
     Active Substance: OMEPRAZOLE
     Indication: PRODUCT USED FOR UNKNOWN INDICATION
     Dosage: 20 MG, QD
     Route: 065
  10. IBUX [Concomitant]
     Active Substance: IBUPROFEN
     Indication: PRODUCT USED FOR UNKNOWN INDICATION
     Dosage: 400 MG, 200-400 MG AS REQUIRED.
     Route: 048
  11. ILARIS [Suspect]
     Active Substance: CANAKINUMAB
     Dosage: 300 UNK, EVERY 4 WEEKS
     Route: 058
     Dates: start: 201201
  12. ILARIS [Suspect]
     Active Substance: CANAKINUMAB
     Dosage: 150 UNK, EVERY 3RD WEEK
     Route: 058
  13. FOLIC ACID. [Concomitant]
     Active Substance: FOLIC ACID
     Indication: PRODUCT USED FOR UNKNOWN INDICATION
     Dosage: 5 MG, UNK
     Route: 065

REACTIONS (15)
  - Leukopenia [Recovered/Resolved]
  - Parvovirus infection [Recovered/Resolved]
  - Juvenile idiopathic arthritis [Unknown]
  - Condition aggravated [Unknown]
  - Arthritis [Recovered/Resolved]
  - Rash [Recovered/Resolved]
  - Thrombocytopenia [Recovered/Resolved]
  - Cytopenia [Recovered/Resolved]
  - Bone marrow disorder [Recovered/Resolved]
  - Pyrexia [Recovered/Resolved]
  - Histiocytosis haematophagic [Recovered/Resolved]
  - Parvovirus B19 infection [Recovered/Resolved]
  - Serum ferritin increased [Recovered/Resolved]
  - General physical health deterioration [Recovered/Resolved]
  - Parvovirus B19 test positive [Recovered/Resolved]

NARRATIVE: CASE EVENT DATE: 20120629
